FAERS Safety Report 10183094 (Version 1)
Quarter: 2014Q2

REPORT INFORMATION
  Report Type: Spontaneous
  Country: US (occurrence: US)
  Receive Date: 20140520
  Receipt Date: 20140520
  Transmission Date: 20141212
  Serious: No
  Sender: FDA-Public Use
  Company Number: US-009507513-1405USA009003

PATIENT
  Sex: Female

DRUGS (2)
  1. LIPTRUZET [Suspect]
     Indication: HYPERCHOLESTEROLAEMIA
     Dosage: 10MG/10MG, ONCE DAILY
     Route: 048
  2. JANUMET [Concomitant]
     Dosage: 50/1000, TWICE DAILY
     Route: 048

REACTIONS (1)
  - Blood triglycerides increased [Recovering/Resolving]
